FAERS Safety Report 8860747 (Version 1)
Quarter: 2012Q4

REPORT INFORMATION
  Report Type: 
  Country: DE (occurrence: DE)
  Receive Date: 20121025
  Receipt Date: 20121025
  Transmission Date: 20130627
  Serious: Yes (Other)
  Sender: FDA-Public Use
  Company Number: DE-ROXANE LABORATORIES, INC.-2012-RO-02066RO

PATIENT
  Age: 60 Year
  Sex: Female

DRUGS (4)
  1. METHOTREXATE [Suspect]
     Indication: RHEUMATOID ARTHRITIS
     Dates: start: 1998
  2. PREDNISOLONE [Suspect]
     Indication: RHEUMATOID ARTHRITIS
     Dosage: 2.5 mg
     Dates: start: 1998
  3. DICLOFENAC SODIUM\MISOPROSTOL [Suspect]
     Indication: RHEUMATOID ARTHRITIS
     Dates: start: 1998
  4. FOLIC ACID [Concomitant]

REACTIONS (4)
  - Odynophagia [Recovered/Resolved]
  - Dysphonia [Recovered/Resolved]
  - Pharyngitis [Recovered/Resolved]
  - Lymphopenia [Recovered/Resolved]
